FAERS Safety Report 8862678 (Version 1)
Quarter: 2012Q4

REPORT INFORMATION
  Report Type: 
  Country: US (occurrence: US)
  Receive Date: 20121026
  Receipt Date: 20121026
  Transmission Date: 20130627
  Serious: Yes (Other)
  Sender: FDA-Public Use
  Company Number: US-ASTRAZENECA-2012SE53829

PATIENT
  Age: 85 Year
  Sex: Female

DRUGS (3)
  1. TOPROL XL [Suspect]
     Indication: BLOOD PRESSURE ABNORMAL
     Route: 048
  2. MULTAQ [Suspect]
     Indication: ATRIAL FIBRILLATION
     Route: 048
  3. PREDNISONE [Concomitant]

REACTIONS (4)
  - Atrial fibrillation [Unknown]
  - Hypotension [Unknown]
  - Fear of falling [Unknown]
  - Dizziness [Unknown]
